FAERS Safety Report 5853097-6 (Version None)
Quarter: 2008Q3

REPORT INFORMATION
  Report Type: 
  Country: None (occurrence: None)
  Receive Date: 20080821
  Receipt Date: 20080811
  Transmission Date: 20090109
  Serious: Yes (Death)
  Sender: FDA-Public Use
  Company Number: ZA-TYCO HEALTHCARE/MALLINCKRODT-T200801339

PATIENT

DRUGS (4)
  1. OPTIRAY 300 [Suspect]
     Indication: COMPUTERISED TOMOGRAM
     Dosage: 125 ML, SINGLE
     Route: 042
     Dates: start: 20080811, end: 20080811
  2. MAGNEVIST [Suspect]
     Indication: NUCLEAR MAGNETIC RESONANCE IMAGING BRAIN
     Dosage: 10 ML, UNK
     Route: 042
     Dates: start: 20080811, end: 20080811
  3. GASTROGRAFIN                       /00025901/ [Suspect]
     Indication: DRUG USE FOR UNKNOWN INDICATION
     Route: 048
     Dates: start: 20080811, end: 20080811
  4. CORTISONE [Concomitant]
     Indication: DRUG USE FOR UNKNOWN INDICATION
     Dosage: 10 MG, UNK

REACTIONS (10)
  - ABDOMINAL PAIN [None]
  - COUGH [None]
  - DYSPNOEA [None]
  - FEELING COLD [None]
  - FLUSHING [None]
  - HYPERHIDROSIS [None]
  - MALAISE [None]
  - NAUSEA [None]
  - RESTLESSNESS [None]
  - WHEEZING [None]
